FAERS Safety Report 13226249 (Version 7)
Quarter: 2022Q1

REPORT INFORMATION
  Report Type: Spontaneous
  Country: US (occurrence: US)
  Receive Date: 20170213
  Receipt Date: 20220106
  Transmission Date: 20220423
  Serious: Yes (Other)
  Sender: FDA-Public Use
  Company Number: US-PFIZER INC-2017057052

PATIENT
  Age: 73 Year
  Sex: Female
  Weight: 58.503 kg

DRUGS (5)
  1. RELPAX [Suspect]
     Active Substance: ELETRIPTAN HYDROBROMIDE
     Indication: Migraine
     Dosage: 40 MG (ONE PER WEEK, TWICE, OR MAYBE TAKE 1 TWO TIMES PER DAY)
     Dates: start: 2002
  2. RELPAX [Suspect]
     Active Substance: ELETRIPTAN HYDROBROMIDE
     Indication: Cluster headache
     Dosage: 40 MG, AS NEEDED (2-3 TIMES A WEEK)
     Route: 048
     Dates: start: 2009
  3. WELLBUTRIN [Concomitant]
     Active Substance: BUPROPION HYDROCHLORIDE
     Indication: Stress
     Dosage: 300 MG, 1X/DAY
     Route: 048
  4. ATORVASTATIN CALCIUM [Concomitant]
     Active Substance: ATORVASTATIN CALCIUM
     Indication: Blood cholesterol
     Dosage: 10 MG, 1X/DAY
     Route: 048
     Dates: start: 2020
  5. METOPROLOL SUCCINATE [Concomitant]
     Active Substance: METOPROLOL SUCCINATE
     Indication: Hypertension
     Dosage: 12.5 MG, 1X/DAY (HALF OF 25 MG)
     Dates: start: 2019

REACTIONS (5)
  - Dyspnoea [Recovered/Resolved]
  - Nausea [Recovered/Resolved]
  - Headache [Recovered/Resolved]
  - Drug ineffective [Recovered/Resolved]
  - Malaise [Recovering/Resolving]

NARRATIVE: CASE EVENT DATE: 20160901
